FAERS Safety Report 17829735 (Version 1)
Quarter: 2020Q2

REPORT INFORMATION
  Report Type: Spontaneous
  Country: US (occurrence: US)
  Receive Date: 20200527
  Receipt Date: 20200527
  Transmission Date: 20200714
  Serious: Yes (Other)
  Sender: FDA-Public Use
  Company Number: None

PATIENT
  Sex: Female
  Weight: 125.1 kg

DRUGS (1)
  1. HYDROXYCHLOROQUINE [Suspect]
     Active Substance: HYDROXYCHLOROQUINE
     Dates: start: 20200427, end: 20200501

REACTIONS (5)
  - Dyspnoea [None]
  - Hypertension [None]
  - Panic attack [None]
  - Nervousness [None]
  - Heart rate increased [None]

NARRATIVE: CASE EVENT DATE: 20200427
